FAERS Safety Report 7059314-1 (Version None)
Quarter: 2010Q4

REPORT INFORMATION
  Report Type: 
  Country: None (occurrence: None)
  Receive Date: 20101025
  Receipt Date: 20101015
  Transmission Date: 20110411
  Serious: No
  Sender: FDA-Public Use
  Company Number: US-BIOGENIDEC-2010BI035665

PATIENT
  Age: 25 Year
  Sex: Female

DRUGS (1)
  1. AVONEX [Suspect]
     Indication: MULTIPLE SCLEROSIS
     Route: 030
     Dates: start: 20100801

REACTIONS (11)
  - DEPRESSION [None]
  - FATIGUE [None]
  - GINGIVAL BLEEDING [None]
  - GINGIVAL SWELLING [None]
  - HEADACHE [None]
  - HEART RATE INCREASED [None]
  - INFLUENZA LIKE ILLNESS [None]
  - INSOMNIA [None]
  - MOOD ALTERED [None]
  - ORAL DISCOMFORT [None]
  - STRESS [None]
